FAERS Safety Report 8958503 (Version 1)
Quarter: 2012Q4

REPORT INFORMATION
  Report Type: Spontaneous
  Country: US (occurrence: None)
  Receive Date: 20121205
  Receipt Date: 20121205
  Transmission Date: 20130627
  Serious: Yes (Other)
  Sender: FDA-Public Use
  Company Number: None

PATIENT
  Sex: Male
  Weight: 79.38 kg

DRUGS (1)
  1. LEVOFLOXACEN [Suspect]
     Indication: COLD
     Dosage: 250mg 1 a Day

REACTIONS (3)
  - Pain [None]
  - Arthralgia [None]
  - Oropharyngeal pain [None]
